FAERS Safety Report 5746644-6 (Version None)
Quarter: 2008Q2

REPORT INFORMATION
  Report Type: 
  Country: None (occurrence: None)
  Receive Date: 20080522
  Receipt Date: 20080513
  Transmission Date: 20081010
  Serious: Yes (Other)
  Sender: FDA-Public Use
  Company Number: PHHY2008JP07800

PATIENT
  Age: 76 Year
  Sex: Female

DRUGS (1)
  1. ZOMETA [Suspect]
     Indication: METASTASES TO BONE
     Dosage: UNK, ONCE EVERY 3 WEEKS
     Route: 042
     Dates: start: 20060701

REACTIONS (6)
  - IMPAIRED HEALING [None]
  - ORAL PUSTULE [None]
  - OSTEONECROSIS [None]
  - PERIODONTAL DISEASE [None]
  - SWELLING [None]
  - TOOTH EXTRACTION [None]
